FAERS Safety Report 15526275 (Version 1)
Quarter: 2018Q4

REPORT INFORMATION
  Report Type: Report from Study
  Country: ES (occurrence: ES)
  Receive Date: 20181018
  Receipt Date: 20181018
  Transmission Date: 20190205
  Serious: Yes (Hospitalization)
  Sender: FDA-Public Use
  Company Number: ES-PFIZER INC-2018422584

PATIENT
  Age: 91 Year
  Sex: Female

DRUGS (7)
  1. SINTROM [Interacting]
     Active Substance: ACENOCOUMAROL
     Indication: PULMONARY EMBOLISM
     Dosage: 2 MG, 1X/DAY
     Route: 048
     Dates: start: 20171220, end: 20180320
  2. PARACETAMOL [Interacting]
     Active Substance: ACETAMINOPHEN
     Dosage: 1 G, 3X/DAY (EVERY 8 HOURS)
     Route: 042
     Dates: start: 20180316
  3. METAMIZOL [Interacting]
     Active Substance: METAMIZOLE SODIUM
     Dosage: 2 G, 3X/DAY (EVERY 8 HOURS)
     Route: 042
     Dates: start: 20180316, end: 20180320
  4. RISPERIDONE. [Concomitant]
     Active Substance: RISPERIDONE
     Dosage: 0.5 MG, AT DINNER
     Route: 048
     Dates: start: 20180316
  5. MEROPENEM. [Suspect]
     Active Substance: MEROPENEM
     Dosage: 2 G, 3X/DAY (EVERY 8 HOURS)
     Route: 042
     Dates: start: 20180316, end: 20180322
  6. AMIKACIN. [Concomitant]
     Active Substance: AMIKACIN
     Dosage: 500 MG, 2X/DAY (EVERY 12 HOURS)
     Route: 042
     Dates: start: 20180316, end: 20180322
  7. ALOPURINOL [Concomitant]
     Active Substance: ALLOPURINOL
     Dosage: 100 MG, DAILY
     Route: 048
     Dates: start: 20180316

REACTIONS (3)
  - Drug interaction [Unknown]
  - Anaemia [Recovering/Resolving]
  - Duodenal ulcer [Recovered/Resolved]

NARRATIVE: CASE EVENT DATE: 20180325
